FAERS Safety Report 10380620 (Version 2)
Quarter: 2014Q3

REPORT INFORMATION
  Report Type: Spontaneous
  Country: US (occurrence: AR)
  Receive Date: 20140813
  Receipt Date: 20140915
  Transmission Date: 20150326
  Serious: Yes (Other)
  Sender: FDA-Public Use
  Company Number: 2014SP004690

PATIENT
  Age: 52 Year
  Sex: Female

DRUGS (4)
  1. METHOTREXATE [Suspect]
     Active Substance: METHOTREXATE
     Indication: RHEUMATOID ARTHRITIS
     Dates: start: 2011
  2. METHOTREXATE [Suspect]
     Active Substance: METHOTREXATE
     Indication: RHEUMATOID ARTHRITIS
     Dates: end: 201405
  3. PREGABALIN. [Concomitant]
     Active Substance: PREGABALIN
  4. ENBREL [Suspect]
     Active Substance: ETANERCEPT
     Indication: RHEUMATOID ARTHRITIS
     Dates: start: 20130507

REACTIONS (20)
  - Pharyngitis [Not Recovered/Not Resolved]
  - Mental disorder [Unknown]
  - Headache [Unknown]
  - Viral infection [Not Recovered/Not Resolved]
  - Blood cholesterol decreased [Unknown]
  - Xerophthalmia [Unknown]
  - Liver disorder [Unknown]
  - Depression [Unknown]
  - Dysphonia [Unknown]
  - Dry eye [Not Recovered/Not Resolved]
  - C-reactive protein decreased [Unknown]
  - Blood triglycerides decreased [Unknown]
  - Ocular hyperaemia [Not Recovered/Not Resolved]
  - Trigeminal palsy [Unknown]
  - Loss of consciousness [Unknown]
  - Thyroid disorder [Not Recovered/Not Resolved]
  - Trismus [Unknown]
  - Nuchal rigidity [Unknown]
  - Speech disorder [Not Recovered/Not Resolved]
  - Pain [Not Recovered/Not Resolved]

NARRATIVE: CASE EVENT DATE: 201406
